FAERS Safety Report 9789942 (Version 1)
Quarter: 2013Q4

REPORT INFORMATION
  Report Type: Spontaneous
  Country: GB (occurrence: None)
  Receive Date: 20131227
  Receipt Date: 20131227
  Transmission Date: 20140711
  Serious: Yes (Disabling)
  Sender: FDA-Public Use
  Company Number: AUR-APL-2013-10644

PATIENT
  Age: 8 Month
  Sex: Male
  Weight: 5.49 kg

DRUGS (3)
  1. AMOXICILLIN (AMOXICILLIN) [Suspect]
     Indication: PRODUCT USED FOR UNKNOWN INDICATION
     Dates: start: 20131202
  2. DIPROBASE (DIPROBASE/01132701/) [Concomitant]
  3. LACTULOSE (LACTULOSE) [Concomitant]

REACTIONS (1)
  - Hyperhidrosis [None]
